FAERS Safety Report 10214686 (Version 1)
Quarter: 2014Q2

REPORT INFORMATION
  Report Type: Spontaneous
  Country: US (occurrence: US)
  Receive Date: 20140603
  Receipt Date: 20140603
  Transmission Date: 20141212
  Serious: Yes (Hospitalization)
  Sender: FDA-Public Use
  Company Number: US-BRISTOL-MYERS SQUIBB COMPANY-20843231

PATIENT
  Age: 65 Year
  Sex: Male

DRUGS (5)
  1. ABATACEPT SUBQ INJECTION 125MG/ML [Suspect]
     Indication: RHEUMATOID ARTHRITIS
     Dosage: PFS
  2. LIPITOR [Interacting]
  3. PLAQUENIL [Interacting]
  4. AZULFIDINE [Interacting]
     Dosage: ENTABS
  5. DILTIAZEM ER [Interacting]

REACTIONS (1)
  - Drug interaction [Unknown]
